FAERS Safety Report 13874180 (Version 5)
Quarter: 2018Q3

REPORT INFORMATION
  Report Type: Spontaneous
  Country: IE (occurrence: IE)
  Receive Date: 20170816
  Receipt Date: 20180724
  Transmission Date: 20181010
  Serious: Yes (Hospitalization, Other)
  Sender: FDA-Public Use
  Company Number: IE-BRISTOL-MYERS SQUIBB COMPANY-BMS-2017-072404

PATIENT
  Age: 24 Year
  Sex: Female

DRUGS (1)
  1. ORENCIA [Suspect]
     Active Substance: ABATACEPT
     Indication: RHEUMATOID ARTHRITIS
     Dosage: 125 MG, QWK
     Route: 058
     Dates: start: 201704

REACTIONS (5)
  - Heart rate increased [Unknown]
  - Kidney infection [Unknown]
  - Drug ineffective [Unknown]
  - C-reactive protein increased [Unknown]
  - Tonsillitis [Unknown]
